FAERS Safety Report 4661840-7 (Version None)
Quarter: 2005Q2

REPORT INFORMATION
  Report Type: 
  Country: None (occurrence: None)
  Receive Date: 20050513
  Receipt Date: 20050407
  Transmission Date: 20051028
  Serious: Yes (Death)
  Sender: FDA-Public Use
  Company Number: US-BRISTOL-MYERS SQUIBB COMPANY-12926549

PATIENT
  Sex: Female

DRUGS (1)
  1. MEGACE [Suspect]
     Indication: LUNG CANCER METASTATIC

REACTIONS (1)
  - MALIGNANT NEOPLASM PROGRESSION [None]
